FAERS Safety Report 7763640-8 (Version None)
Quarter: 2011Q3

REPORT INFORMATION
  Report Type: 
  Country: None (occurrence: None)
  Receive Date: 20110921
  Receipt Date: 20110914
  Transmission Date: 20111222
  Serious: Yes (Death, Other)
  Sender: FDA-Public Use
  Company Number: US-BIOGENIDEC-2011BI030301

PATIENT
  Age: 47 Year
  Sex: Female

DRUGS (11)
  1. IMIPRAMINE [Concomitant]
  2. TYSABRI [Suspect]
     Indication: MULTIPLE SCLEROSIS
     Route: 042
     Dates: start: 20110806, end: 20110806
  3. VITAMIN D [Concomitant]
     Indication: VITAMIN D DEFICIENCY
  4. ULTRACET [Concomitant]
     Indication: PAIN IN EXTREMITY
  5. PROVENTIL [Concomitant]
     Indication: BRONCHITIS
  6. PROVENTIL [Concomitant]
     Indication: ASTHMA
  7. LUNESTA [Concomitant]
     Indication: SEDATIVE THERAPY
  8. FOSAMAX [Concomitant]
     Indication: OSTEOPENIA
  9. CLONAZEPAM [Concomitant]
     Indication: ANXIETY
  10. IMIPRAMINE [Concomitant]
     Indication: BLADDER DYSFUNCTION
  11. ESTRADIOL [Concomitant]
     Indication: HORMONE REPLACEMENT THERAPY

REACTIONS (2)
  - ANAPHYLACTIC SHOCK [None]
  - CARDIO-RESPIRATORY ARREST [None]
